FAERS Safety Report 5162557-5 (Version None)
Quarter: 2006Q4

REPORT INFORMATION
  Report Type: 
  Country: None (occurrence: None)
  Receive Date: 20061121
  Receipt Date: 20061107
  Transmission Date: 20070319
  Serious: Yes (Hospitalization)
  Sender: FDA-Public Use
  Company Number: ABZUS-06-0536

PATIENT
  Age: 43 Year
  Sex: Female
  Weight: 98.8842 kg

DRUGS (4)
  1. ABRAXANE [Suspect]
     Indication: BREAST CANCER
     Dosage: (175 MG/M2, ONCE EVERY THREE WEEKS), INTRAVENOUS
     Route: 042
     Dates: start: 20060714
  2. CYTOXAN [Suspect]
     Indication: BREAST CANCER
     Dosage: 500 MG/M2, ONCE EVERY THREE WEEKS), INTRAVENOUS
     Route: 042
     Dates: start: 20060711
  3. ADRIAMYCIN PFS [Suspect]
     Indication: BREAST CANCER
     Dosage: (50 MG/M2, ONCE EVERY THREE WEEKS), INTRAVENOUS
     Route: 042
     Dates: start: 20060711
  4. PROCRIT [Suspect]
     Indication: ANAEMIA OF MALIGNANT DISEASE
     Dosage: (80000 IU, ONCE WEEKLY), SUBCUTANEOUS
     Route: 058
     Dates: start: 20060609, end: 20060904

REACTIONS (3)
  - ASTHMA [None]
  - BRONCHITIS [None]
  - CONDITION AGGRAVATED [None]
